FAERS Safety Report 8085856-6 (Version None)
Quarter: 2012Q1

REPORT INFORMATION
  Report Type: 
  Country: None (occurrence: None)
  Receive Date: 20120128
  Receipt Date: 20110419
  Transmission Date: 20120608
  Serious: No
  Sender: FDA-Public Use
  Company Number: US-ABBOTT-11P-163-0720315-00

PATIENT
  Age: 38 Year
  Sex: Female

DRUGS (2)
  1. ORTHO TRI-CYCLEN [Concomitant]
     Indication: CONTRACEPTION
     Dosage: PILLS
  2. HUMIRA [Suspect]
     Indication: PSORIASIS
     Dates: start: 20100701

REACTIONS (1)
  - SINUSITIS [None]
